FAERS Safety Report 5820853-X (Version None)
Quarter: 2008Q3

REPORT INFORMATION
  Report Type: 
  Country: None (occurrence: None)
  Receive Date: 20080718
  Receipt Date: 20080718
  Transmission Date: 20090109
  Serious: Yes (Disabling)
  Sender: FDA-Public Use
  Company Number: None

PATIENT
  Age: 45 Year
  Sex: Male

DRUGS (2)
  1. CISPLATIN [Suspect]
     Indication: TONGUE NEOPLASM MALIGNANT STAGE UNSPECIFIED
  2. VANCOMYCIN HCL [Suspect]
     Indication: FEBRILE NEUTROPENIA

REACTIONS (2)
  - FEBRILE NEUTROPENIA [None]
  - RENAL FAILURE ACUTE [None]
